FAERS Safety Report 5930791-X (Version None)
Quarter: 2008Q4

REPORT INFORMATION
  Report Type: 
  Country: None (occurrence: None)
  Receive Date: 20081002
  Receipt Date: 20080604
  Transmission Date: 20090506
  Serious: Yes (Other)
  Sender: FDA-Public Use
  Company Number: 2008-0016323

PATIENT
  Age: 30 Year
  Sex: Male
  Weight: 56.246 kg

DRUGS (5)
  1. TRUVADA [Suspect]
     Indication: HIV INFECTION
     Dates: start: 20061003, end: 20061010
  2. KALETRA [Concomitant]
  3. HYDRALAZINE HCL [Concomitant]
  4. ATENOLOL [Concomitant]
  5. CHLORTHALIDONE [Concomitant]

REACTIONS (1)
  - BLOOD CREATININE INCREASED [None]
